FAERS Safety Report 17055488 (Version 1)
Quarter: 2019Q4

REPORT INFORMATION
  Report Type: Spontaneous
  Country: GB (occurrence: GB)
  Receive Date: 20191120
  Receipt Date: 20191120
  Transmission Date: 20200122
  Serious: Yes (Death, Other)
  Sender: FDA-Public Use
  Company Number: GB-BAUSCH-BL-2019-061825

PATIENT
  Sex: Male
  Weight: 1.98 kg

DRUGS (1)
  1. METFORMIN [Suspect]
     Active Substance: METFORMIN HYDROCHLORIDE
     Indication: PRODUCT USED FOR UNKNOWN INDICATION
     Dosage: STARTED AT 28 WEEKS
     Route: 064
     Dates: start: 20080917, end: 20081113

REACTIONS (3)
  - Tracheo-oesophageal fistula [Fatal]
  - Foetal growth restriction [Fatal]
  - Oesophageal atresia [Fatal]
